FAERS Safety Report 7302429-0 (Version None)
Quarter: 2011Q1

REPORT INFORMATION
  Report Type: 
  Country: None (occurrence: None)
  Receive Date: 20110218
  Receipt Date: 20100309
  Transmission Date: 20110831
  Serious: No
  Sender: FDA-Public Use
  Company Number: US-ASTRAZENECA-2009SE32411

PATIENT
  Sex: Female

DRUGS (3)
  1. FELODIPINE [Suspect]
     Indication: HYPERTENSION
     Route: 048
     Dates: start: 20090901, end: 20091101
  2. FELODIPINE [Suspect]
     Route: 048
     Dates: start: 20100129
  3. FELODIPINE [Suspect]
     Route: 048
     Dates: start: 20090901

REACTIONS (9)
  - TACHYCARDIA [None]
  - ANXIETY [None]
  - TINNITUS [None]
  - ABDOMINAL PAIN [None]
  - HYPERTENSION [None]
  - URINARY INCONTINENCE [None]
  - NAUSEA [None]
  - BLOOD PRESSURE INCREASED [None]
  - DRUG INEFFECTIVE [None]
